FAERS Safety Report 8175717-6 (Version None)
Quarter: 2012Q1

REPORT INFORMATION
  Report Type: 
  Country: None (occurrence: None)
  Receive Date: 20120301
  Receipt Date: 20120220
  Transmission Date: 20120608
  Serious: Yes (Hospitalization)
  Sender: FDA-Public Use
  Company Number: US-AMGEN-USASP2012011510

PATIENT
  Age: 69 Year
  Sex: Female

DRUGS (1)
  1. ENBREL [Suspect]
     Indication: RHEUMATOID ARTHRITIS
     Dosage: 50 MG, QWK
     Dates: start: 20060602

REACTIONS (5)
  - INTESTINAL MASS [None]
  - POST PROCEDURAL DRAINAGE [None]
  - SKIN DISCOLOURATION [None]
  - PAIN [None]
  - MUSCULOSKELETAL STIFFNESS [None]
